FAERS Safety Report 11304062 (Version 1)
Quarter: 2015Q3

REPORT INFORMATION
  Report Type: Spontaneous
  Country: US (occurrence: US)
  Receive Date: 20150723
  Receipt Date: 20150723
  Transmission Date: 20151125
  Serious: No
  Sender: FDA-Public Use
  Company Number: US-JNJFOC-20150422810

PATIENT
  Age: 24 Year
  Sex: Female
  Weight: 58.97 kg

DRUGS (7)
  1. PROBIOTICS [Concomitant]
     Active Substance: PROBIOTICS NOS
     Indication: URTICARIA
     Dosage: 4 DAYS
     Route: 065
     Dates: start: 20150424
  2. ZYRTEC [Concomitant]
     Active Substance: CETIRIZINE HYDROCHLORIDE
     Indication: URTICARIA
     Dosage: 4 DAYS
     Route: 065
  3. CELEXA [Concomitant]
     Active Substance: CITALOPRAM HYDROBROMIDE
     Indication: PRODUCT USED FOR UNKNOWN INDICATION
     Route: 065
  4. PEPCID [Suspect]
     Active Substance: FAMOTIDINE
     Route: 048
  5. UNSPECIFIED BIRTH CONTROL [Concomitant]
     Active Substance: UNSPECIFIED INGREDIENT
     Indication: CONTRACEPTION
     Route: 065
  6. PEPCID [Suspect]
     Active Substance: FAMOTIDINE
     Indication: URTICARIA
     Dosage: 1 TABLET
     Route: 048
     Dates: start: 20150424
  7. ACNE MEDICATION, NOS [Concomitant]
     Indication: ACNE
     Route: 065

REACTIONS (1)
  - Product use issue [Unknown]
